FAERS Safety Report 4640350-7 (Version None)
Quarter: 2005Q2

REPORT INFORMATION
  Report Type: 
  Country: None (occurrence: None)
  Receive Date: 20050420
  Receipt Date: 20040319
  Transmission Date: 20051028
  Serious: No
  Sender: FDA-Public Use
  Company Number: US-GLAXOSMITHKLINE-A0503524A

PATIENT
  Sex: Female

DRUGS (6)
  1. ESKALITH [Suspect]
     Dosage: 1200MG PER DAY
     Route: 048
     Dates: start: 19880101
  2. PROZAC [Concomitant]
  3. SKELAXIN [Concomitant]
  4. SYNTHROID [Concomitant]
  5. IBUPROFEN [Concomitant]
  6. VISTARIL [Concomitant]

REACTIONS (3)
  - DYSGEUSIA [None]
  - HEADACHE [None]
  - OVERDOSE [None]
